FAERS Safety Report 7088427-3 (Version None)
Quarter: 2010Q4

REPORT INFORMATION
  Report Type: 
  Country: None (occurrence: None)
  Receive Date: 20101108
  Receipt Date: 20101102
  Transmission Date: 20110411
  Serious: Yes (Hospitalization)
  Sender: FDA-Public Use
  Company Number: FR-ROCHE-736434

PATIENT
  Sex: Female

DRUGS (5)
  1. APRANAX [Suspect]
     Route: 048
     Dates: start: 20100715, end: 20100816
  2. CELEBREX [Suspect]
     Route: 048
     Dates: start: 20100715, end: 20100816
  3. PIASCLEDINE [Suspect]
     Route: 048
     Dates: start: 20100715, end: 20100816
  4. PROVAMES [Concomitant]
     Route: 048
     Dates: start: 20050101
  5. ANDROCUR [Concomitant]
     Route: 048
     Dates: start: 20050101

REACTIONS (4)
  - BLEEDING ANOVULATORY [None]
  - ECCHYMOSIS [None]
  - PURPURA [None]
  - THROMBOCYTOPENIA [None]
